FAERS Safety Report 17504050 (Version 4)
Quarter: 2020Q2

REPORT INFORMATION
  Report Type: Report from Study
  Country: None (occurrence: JP)
  Receive Date: 20200305
  Receipt Date: 20200629
  Transmission Date: 20200713
  Serious: Yes (Death)
  Sender: FDA-Public Use
  Company Number: JP-ABBVIE-20K-087-3306497-00

PATIENT
  Age: 72 Year
  Sex: Female
  Weight: 40 kg

DRUGS (3)
  1. DUODOPA [Suspect]
     Active Substance: CARBIDOPA\LEVODOPA
     Dosage: MD: 11 ML??CD: 5.1 ML/HR ? 16 HRS??ED: 1 ML/UNIT ? 2
     Route: 050
     Dates: start: 20200205, end: 20200226
  2. ROTIGOTINE [Concomitant]
     Active Substance: ROTIGOTINE
     Indication: PARKINSON^S DISEASE
     Route: 062
     Dates: start: 20190301, end: 20200226
  3. DUODOPA [Suspect]
     Active Substance: CARBIDOPA\LEVODOPA
     Indication: PARKINSON^S DISEASE
     Dosage: MD: 11 ML?CD: 4.6 ML/HR ? 16 HRS?ED: 1 ML/UNIT ? 2
     Route: 050
     Dates: start: 20190301, end: 20200204

REACTIONS (3)
  - Pyrexia [Fatal]
  - Pneumonia aspiration [Fatal]
  - Dyspnoea [Fatal]

NARRATIVE: CASE EVENT DATE: 20200220
